FAERS Safety Report 7230869-7 (Version None)
Quarter: 2011Q1

REPORT INFORMATION
  Report Type: 
  Country: None (occurrence: None)
  Receive Date: 20110118
  Receipt Date: 20110114
  Transmission Date: 20110831
  Serious: Yes (Hospitalization)
  Sender: FDA-Public Use
  Company Number: US-PFIZER INC-2010041355

PATIENT
  Age: 61 Year
  Sex: Female
  Weight: 40.8 kg

DRUGS (3)
  1. SUNITINIB MALATE [Suspect]
     Indication: HEAD AND NECK CANCER
     Dosage: 12.5 MG, QD STARTING ON DAY -7
     Route: 048
     Dates: start: 20091110
  2. CETUXIMAB [Suspect]
     Indication: HEAD AND NECK CANCER
     Dosage: 250 MG/M2, OVER 1 HR STARTING ON DAY 1, WEEKLY FOR 7 WKS
     Route: 042
     Dates: start: 20091110
  3. CETUXIMAB [Suspect]
     Dosage: 400 MG/M2, OVER 2 HRS ON DAY -7
     Route: 042
     Dates: start: 20091110

REACTIONS (5)
  - FATIGUE [None]
  - MENTAL STATUS CHANGES [None]
  - OSTEOMYELITIS [None]
  - ENCEPHALOPATHY [None]
  - OSTEONECROSIS OF JAW [None]
